FAERS Safety Report 9457101 (Version 1)
Quarter: 2013Q3

REPORT INFORMATION
  Report Type: Spontaneous
  Country: US (occurrence: US)
  Receive Date: 20130814
  Receipt Date: 20130814
  Transmission Date: 20140515
  Serious: No
  Sender: FDA-Public Use
  Company Number: US-BIOGENIDEC-2013BI074580

PATIENT
  Age: 40 Year
  Sex: Female

DRUGS (2)
  1. TYSABRI [Suspect]
     Indication: MULTIPLE SCLEROSIS
     Route: 042
     Dates: start: 20070109, end: 20130723
  2. AVONEX [Concomitant]
     Indication: MULTIPLE SCLEROSIS
     Route: 030
     Dates: start: 20070201

REACTIONS (2)
  - Papilloma viral infection [Not Recovered/Not Resolved]
  - Pain [Unknown]
